FAERS Safety Report 5968062-8 (Version None)
Quarter: 2008Q4

REPORT INFORMATION
  Report Type: 
  Country: None (occurrence: None)
  Receive Date: 20081121
  Receipt Date: 20081028
  Transmission Date: 20090506
  Serious: Yes (Death, Hospitalization)
  Sender: FDA-Public Use
  Company Number: 2008S1018246

PATIENT
  Age: 82 Year
  Sex: Female

DRUGS (2)
  1. IBUPROFEN [Suspect]
     Indication: INFLUENZA
     Dosage: 1200 MG; ORAL
     Route: 048
  2. IBUPROFEN [Suspect]
     Indication: PAIN
     Dosage: 1200 MG; ORAL
     Route: 048

REACTIONS (4)
  - ANAEMIA [None]
  - DUODENITIS HAEMORRHAGIC [None]
  - GASTRITIS HAEMORRHAGIC [None]
  - SHOCK [None]
